FAERS Safety Report 4696744-7 (Version None)
Quarter: 2005Q2

REPORT INFORMATION
  Report Type: 
  Country: None (occurrence: None)
  Receive Date: 20050622
  Receipt Date: 20050609
  Transmission Date: 20051028
  Serious: Yes (Hospitalization)
  Sender: FDA-Public Use
  Company Number: 200511953FR

PATIENT
  Age: 62 Year
  Sex: Male

DRUGS (25)
  1. TARGOCID [Suspect]
     Route: 042
     Dates: start: 20050511, end: 20050523
  2. LASILIX [Suspect]
     Route: 042
     Dates: start: 20050518, end: 20050521
  3. AUGMENTIN '125' [Suspect]
     Route: 042
     Dates: start: 20050518, end: 20050521
  4. SOLUPRED [Concomitant]
     Route: 048
  5. MONO-TILDIEM [Concomitant]
     Route: 048
  6. KARDEGIC [Concomitant]
     Route: 048
  7. FUROSEMIDE [Concomitant]
  8. CLAFORAN [Concomitant]
     Dates: start: 20050511, end: 20050519
  9. FLAGYL [Concomitant]
     Dates: start: 20050511, end: 20050519
  10. PLAVIX [Concomitant]
     Dates: start: 20050507
  11. NEURONTIN [Concomitant]
     Route: 048
  12. SURBRONC [Concomitant]
  13. IKOREL [Concomitant]
     Route: 048
  14. COZAAR [Concomitant]
     Route: 048
  15. COMBIVENT [Concomitant]
  16. SERETIDE [Concomitant]
     Route: 048
  17. ZOCOR [Concomitant]
     Route: 048
  18. ART 50 [Concomitant]
  19. AMPECYCLAL [Concomitant]
  20. AMODEX [Concomitant]
  21. INSULIN [Concomitant]
     Dates: start: 20050507
  22. MIXTARD HUMAN 70/30 [Concomitant]
     Dates: start: 20050507
  23. HEPARIN [Concomitant]
     Dates: start: 20050519
  24. CALCIPARINE [Concomitant]
     Dates: start: 20050519
  25. COVERSYL [Concomitant]
     Dates: start: 20050507

REACTIONS (5)
  - ACUTE GENERALISED EXANTHEMATOUS PUSTULOSIS [None]
  - CARDIOPULMONARY FAILURE [None]
  - LEUKOCYTOSIS [None]
  - MYOCARDIAL INFARCTION [None]
  - SUPERINFECTION [None]
